FAERS Safety Report 18529076 (Version 3)
Quarter: 2021Q2

REPORT INFORMATION
  Report Type: Report from Study
  Country: CZ (occurrence: CZ)
  Receive Date: 20201120
  Receipt Date: 20210424
  Transmission Date: 20210717
  Serious: Yes (Hospitalization)
  Sender: FDA-Public Use
  Company Number: CZ-TAKEDA-2020TUS049662

PATIENT
  Age: 11 Year
  Sex: Female
  Weight: 33 kg

DRUGS (29)
  1. HUMAN IMMUNOGLOBULIN; HYALURONIDASE [Suspect]
     Active Substance: HUMAN IMMUNOGLOBULIN G\HYALURONIDASE RECOMBINANT HUMAN
     Dosage: 25 MILLILITER
     Route: 058
     Dates: start: 20161122
  2. HUMAN IMMUNOGLOBULIN; HYALURONIDASE [Suspect]
     Active Substance: HUMAN IMMUNOGLOBULIN G\HYALURONIDASE RECOMBINANT HUMAN
     Dosage: 373 MILLIGRAM/KILOGRAM, Q4WEEKS
     Route: 058
     Dates: start: 20180226
  3. HUMAN IMMUNOGLOBULIN; HYALURONIDASE [Suspect]
     Active Substance: HUMAN IMMUNOGLOBULIN G\HYALURONIDASE RECOMBINANT HUMAN
     Dosage: 336 MILLIGRAM/KILOGRAM,Q4WEEKS
     Route: 058
     Dates: start: 20190530, end: 20190530
  4. MAGNESIUM LACTATE;PYRIDOXINE HYDROCHLORIDE [Concomitant]
     Active Substance: MAGNESIUM LACTATE\PYRIDOXINE HYDROCHLORIDE
     Indication: AUTISM SPECTRUM DISORDER
     Dosage: 470 MILLIGRAM, QD
     Route: 048
     Dates: start: 20150202
  5. HUMAN IMMUNOGLOBULIN; HYALURONIDASE [Suspect]
     Active Substance: HUMAN IMMUNOGLOBULIN G\HYALURONIDASE RECOMBINANT HUMAN
     Dosage: 362 MILLIGRAM/KILOGRAM, Q4WEEKS
     Route: 058
     Dates: start: 20190306, end: 20190306
  6. HERPESIN [ACICLOVIR] [Concomitant]
     Active Substance: ACYCLOVIR
     Indication: HERPES VIRUS INFECTION
  7. FLUTICASONE. [Concomitant]
     Active Substance: FLUTICASONE
     Indication: RHINITIS
     Dosage: 50 MICROGRAM
     Dates: start: 20160104
  8. HUMAN IMMUNOGLOBULIN; HYALURONIDASE [Suspect]
     Active Substance: HUMAN IMMUNOGLOBULIN G\HYALURONIDASE RECOMBINANT HUMAN
     Dosage: 384 MILLIGRAM/KILOGRAM, Q4WEEKS
     Route: 058
     Dates: start: 20180725, end: 20180725
  9. BISEPTOL [Concomitant]
     Active Substance: SULFAMETHOXAZOLE\TRIMETHOPRIM
     Indication: ACTIVATED PI3 KINASE DELTA SYNDROME
     Dosage: 480 MILLIGRAM, QD
     Route: 048
     Dates: start: 20090101
  10. SINGULAIR [Concomitant]
     Active Substance: MONTELUKAST SODIUM
     Indication: COUGH
     Dosage: 5 MILLIGRAM, QD
     Route: 048
  11. COMBAIR [BECLOMETASONE DIPROPIONATE;FORMOTEROL FUMARATE] [Concomitant]
     Active Substance: BECLOMETHASONE DIPROPIONATE\FORMOTEROL FUMARATE
     Indication: COUGH
     Dosage: 100 MICROGRAM, BID
     Route: 048
     Dates: start: 20180101
  12. PARALEN [PARACETAMOL] [Concomitant]
     Indication: DENTAL CARE
     Dosage: 500 MILLIGRAM, BID
     Route: 048
     Dates: start: 20190208, end: 20190214
  13. NACL [Concomitant]
     Active Substance: SODIUM CHLORIDE
     Indication: INHALATION THERAPY
  14. HUMAN IMMUNOGLOBULIN; HYALURONIDASE [Suspect]
     Active Substance: HUMAN IMMUNOGLOBULIN G\HYALURONIDASE RECOMBINANT HUMAN
     Indication: HYPOGAMMAGLOBULINAEMIA
     Dosage: 125 MILLILITER
     Route: 058
     Dates: start: 20180627, end: 20180926
  15. HUMAN IMMUNOGLOBULIN; HYALURONIDASE [Suspect]
     Active Substance: HUMAN IMMUNOGLOBULIN G\HYALURONIDASE RECOMBINANT HUMAN
     Dosage: 125 MILLILITER
     Route: 058
     Dates: start: 20190112
  16. HUMAN IMMUNOGLOBULIN; HYALURONIDASE [Suspect]
     Active Substance: HUMAN IMMUNOGLOBULIN G\HYALURONIDASE RECOMBINANT HUMAN
     Dosage: 357 MILLIGRAM/KILOGRAM, Q4WEEKS
     Route: 058
     Dates: start: 20180627, end: 20180627
  17. HUMAN IMMUNOGLOBULIN; HYALURONIDASE [Suspect]
     Active Substance: HUMAN IMMUNOGLOBULIN G\HYALURONIDASE RECOMBINANT HUMAN
     Dosage: 362 MILLIGRAM/KILOGRAM, Q4WEEKS
     Route: 058
     Dates: start: 20190306, end: 20190306
  18. HUMAN IMMUNOGLOBULIN; HYALURONIDASE [Suspect]
     Active Substance: HUMAN IMMUNOGLOBULIN G\HYALURONIDASE RECOMBINANT HUMAN
     Dosage: 336 MILLIGRAM/KILOGRAM, Q4WEEKS
     Route: 058
     Dates: start: 20190530, end: 20190530
  19. HERPESIN [ACICLOVIR] [Concomitant]
     Active Substance: ACYCLOVIR
     Indication: PROPHYLAXIS
     Dosage: 200 MILLIGRAM, QD
     Route: 048
     Dates: start: 2016
  20. VENTOLIN [Concomitant]
     Active Substance: ALBUTEROL SULFATE
     Indication: COUGH
     Dosage: 2 DOSAGE FORM
     Route: 048
     Dates: start: 20150105
  21. KLACID [CLARITHROMYCIN] [Concomitant]
     Active Substance: CLARITHROMYCIN
     Indication: PNEUMONIA
     Dosage: UNK UNK, BID
     Route: 048
     Dates: start: 20190509, end: 20190516
  22. HUMAN IMMUNOGLOBULIN; HYALURONIDASE [Suspect]
     Active Substance: HUMAN IMMUNOGLOBULIN G\HYALURONIDASE RECOMBINANT HUMAN
     Dosage: 357 MILLIGRAM/KILOGRAM, Q4WEEKS
     Route: 058
     Dates: start: 20180627, end: 20180627
  23. HUMAN IMMUNOGLOBULIN; HYALURONIDASE [Suspect]
     Active Substance: HUMAN IMMUNOGLOBULIN G\HYALURONIDASE RECOMBINANT HUMAN
     Dosage: 362 MILLIGRAM/KILOGRAM, Q4WEEKS
     Route: 058
     Dates: start: 20190306, end: 20190306
  24. HUMAN IMMUNOGLOBULIN; HYALURONIDASE [Suspect]
     Active Substance: HUMAN IMMUNOGLOBULIN G\HYALURONIDASE RECOMBINANT HUMAN
     Dosage: 336 MILLIGRAM/KILOGRAM,Q4WEEKS
     Route: 058
     Dates: start: 20190530, end: 20190530
  25. TIAPRIDE [Concomitant]
     Active Substance: TIAPRIDE
     Indication: AUTISM SPECTRUM DISORDER
     Dosage: 25 MILLIGRAM, BID
     Route: 048
  26. RINGER [CALCIUM CHLORIDE DIHYDRATE;MAGNESIUM CHLORIDE;POTASSIUM CHLORI [Concomitant]
     Indication: FLUID REPLACEMENT
     Dosage: 250 MILLILITER, QD
     Route: 042
     Dates: start: 20190208, end: 20190208
  27. HUMAN IMMUNOGLOBULIN; HYALURONIDASE [Suspect]
     Active Substance: HUMAN IMMUNOGLOBULIN G\HYALURONIDASE RECOMBINANT HUMAN
     Dosage: 384 MILLIGRAM/KILOGRAM, Q4WEEKS
     Route: 058
     Dates: start: 20180725, end: 20180725
  28. ZODAC [Concomitant]
     Active Substance: CETIRIZINE HYDROCHLORIDE
     Indication: PRURITUS
     Dosage: UNK
     Route: 048
     Dates: start: 20180627, end: 20180627
  29. ASCORUTIN [Concomitant]
     Active Substance: ASCORBIC ACID\RUTIN
     Indication: CONTUSION
     Dosage: 100 MICROGRAM, QD
     Route: 048
     Dates: start: 20180108

REACTIONS (1)
  - Dental caries [Recovered/Resolved]

NARRATIVE: CASE EVENT DATE: 20190207
